FAERS Safety Report 7718517-0 (Version None)
Quarter: 2011Q3

REPORT INFORMATION
  Report Type: 
  Country: None (occurrence: None)
  Receive Date: 20110830
  Receipt Date: 20110826
  Transmission Date: 20111222
  Serious: No
  Sender: FDA-Public Use
  Company Number: US-PFIZER INC-2011199405

PATIENT
  Sex: Female
  Weight: 83.9 kg

DRUGS (7)
  1. NORVASC [Suspect]
     Indication: HYPERTENSION
     Dosage: 5 MG, 1X/DAY
     Route: 048
     Dates: start: 20110707, end: 20110817
  2. PROBIOTIC [Concomitant]
     Dosage: UNK
  3. IRON [Concomitant]
     Dosage: UNK
  4. TOPROL-XL [Concomitant]
     Indication: HYPERTENSION
     Dosage: UNK
  5. VITAMIN B [Concomitant]
     Dosage: UNK
  6. MULTI-VITAMINS [Concomitant]
     Dosage: UNK
  7. CALCIUM [Concomitant]
     Dosage: UNK

REACTIONS (1)
  - ARTHRALGIA [None]
